FAERS Safety Report 18911740 (Version 2)
Quarter: 2021Q1

REPORT INFORMATION
  Report Type: Spontaneous
  Country: DE (occurrence: DE)
  Receive Date: 20210218
  Receipt Date: 20210224
  Transmission Date: 20210420
  Serious: Yes (Other)
  Sender: FDA-Public Use
  Company Number: DE-STEMLINE THERAPEUTICS, INC.-2021ST000004

PATIENT
  Age: 81 Year
  Sex: Female
  Weight: 76 kg

DRUGS (1)
  1. ELZONRIS [Suspect]
     Active Substance: TAGRAXOFUSP-ERZS
     Indication: BLASTIC PLASMACYTOID DENDRITIC CELL NEOPLASIA
     Route: 042
     Dates: start: 20210209

REACTIONS (4)
  - Capillary leak syndrome [Unknown]
  - Hepatotoxicity [Recovering/Resolving]
  - Thirst [Unknown]
  - Weight increased [Not Recovered/Not Resolved]

NARRATIVE: CASE EVENT DATE: 202102
